FAERS Safety Report 15390438 (Version 2)
Quarter: 2018Q4

REPORT INFORMATION
  Report Type: Spontaneous
  Country: US (occurrence: US)
  Receive Date: 20180917
  Receipt Date: 20181012
  Transmission Date: 20190204
  Serious: No
  Sender: FDA-Public Use
  Company Number: PHEH2018US037889

PATIENT
  Sex: Male

DRUGS (2)
  1. AFINITOR [Suspect]
     Active Substance: EVEROLIMUS
     Indication: METASTASES TO LUNG
     Dosage: 5 MG, QD
     Route: 048
     Dates: start: 20180820
  2. LENVIMA [Suspect]
     Active Substance: LENVATINIB
     Indication: METASTASES TO LUNG
     Dosage: 18 MG, QD
     Route: 048
     Dates: start: 20180820

REACTIONS (8)
  - Epistaxis [Unknown]
  - Asthenia [Unknown]
  - Sinus headache [Unknown]
  - Dyspnoea [Unknown]
  - Oedema peripheral [Unknown]
  - Blood pressure increased [Unknown]
  - Heart rate increased [Unknown]
  - Product use in unapproved indication [Unknown]
